FAERS Safety Report 15384837 (Version 1)
Quarter: 2018Q3

REPORT INFORMATION
  Report Type: Spontaneous
  Country: US (occurrence: US)
  Receive Date: 20180914
  Receipt Date: 20180914
  Transmission Date: 20181010
  Serious: No
  Sender: FDA-Public Use
  Company Number: US-EMD SERONO-9042666

PATIENT
  Sex: Female

DRUGS (2)
  1. REBIF [Suspect]
     Active Substance: INTERFERON BETA-1A
     Indication: MULTIPLE SCLEROSIS
     Dosage: STRENGTH: 44MCG/0.5ML
     Route: 058
     Dates: start: 20170411
  2. REBIF [Suspect]
     Active Substance: INTERFERON BETA-1A
     Dosage: STRENGTH: 44MCG/0.5ML
     Route: 058
     Dates: start: 20180407

REACTIONS (5)
  - Fall [Unknown]
  - Speech disorder [Unknown]
  - Dysphagia [Unknown]
  - Hypoaesthesia [Unknown]
  - Memory impairment [Unknown]
